FAERS Safety Report 5913606-5 (Version None)
Quarter: 2008Q4

REPORT INFORMATION
  Report Type: 
  Country: None (occurrence: None)
  Receive Date: 20081009
  Receipt Date: 20081007
  Transmission Date: 20090506
  Serious: Yes (Hospitalization)
  Sender: FDA-Public Use
  Company Number: US-BAYER-200829992NA

PATIENT
  Age: 25 Year
  Sex: Female
  Weight: 104 kg

DRUGS (1)
  1. MIRENA [Suspect]
     Indication: CONTRACEPTION
     Route: 015
     Dates: start: 20060915, end: 20071019

REACTIONS (1)
  - PELVIC INFLAMMATORY DISEASE [None]
